FAERS Safety Report 16228293 (Version 1)
Quarter: 2019Q2

REPORT INFORMATION
  Report Type: Spontaneous
  Country: US (occurrence: US)
  Receive Date: 20190318
  Receipt Date: 20190318
  Transmission Date: 20190711
  Serious: Yes (Life-Threatening, Hospitalization)
  Sender: FDA-Public Use
  Company Number: None

PATIENT
  Age: 76 Year
  Sex: Female
  Weight: 48.08 kg

DRUGS (13)
  1. XOPENEX HFA [Concomitant]
     Active Substance: LEVALBUTEROL TARTRATE
  2. ALIGN PROBIOTIC CHEWABLES [Concomitant]
  3. ADVAIR HFA [Concomitant]
     Active Substance: FLUTICASONE PROPIONATE\SALMETEROL XINAFOATE
  4. AMLOPIPPINE BESTYLATE [Concomitant]
  5. OXYMETAZOLINE HCL [Concomitant]
     Active Substance: OXYMETAZOLINE HYDROCHLORIDE
  6. CALCIUM [Concomitant]
     Active Substance: CALCIUM
  7. MEDICAL MARIJUANA TINCTURE OILS [Concomitant]
  8. YUPELRI [Suspect]
     Active Substance: REVEFENACIN
     Indication: CHRONIC OBSTRUCTIVE PULMONARY DISEASE
     Dosage: ?          QUANTITY:175MCG PER 3ML;?
     Route: 055
     Dates: start: 20190315
  9. METRONIDAZOLE. [Concomitant]
     Active Substance: METRONIDAZOLE
  10. MUCINEX [Concomitant]
     Active Substance: GUAIFENESIN
  11. YUPELRI [Concomitant]
     Active Substance: REVEFENACIN
  12. SULFATEMETH/TRIMETHOPRM [Concomitant]
  13. DIAZEPAM. [Concomitant]
     Active Substance: DIAZEPAM

REACTIONS (1)
  - Drug hypersensitivity [None]

NARRATIVE: CASE EVENT DATE: 20190316
